FAERS Safety Report 14621784 (Version 1)
Quarter: 2018Q1

REPORT INFORMATION
  Report Type: Spontaneous
  Country: GB (occurrence: GB)
  Receive Date: 20180310
  Receipt Date: 20180310
  Transmission Date: 20180509
  Serious: Yes (Death)
  Sender: FDA-Public Use
  Company Number: GB-3M-2018-UK-000023

PATIENT
  Age: 22 Year
  Sex: Male
  Weight: 57.3 kg

DRUGS (8)
  1. LOPERAMIDE [Concomitant]
     Active Substance: LOPERAMIDE
     Route: 065
  2. PARACETAMOL [Concomitant]
     Active Substance: ACETAMINOPHEN
     Route: 065
  3. SALICYLATE SODIUM [Concomitant]
     Active Substance: SODIUM SALICYLATE
     Route: 065
  4. PENICILLIN [Concomitant]
     Active Substance: PENICILLIN
     Route: 065
  5. CREON [Concomitant]
     Active Substance: PANCRELIPASE AMYLASE\PANCRELIPASE LIPASE\PANCRELIPASE PROTEASE
     Route: 065
  6. PERIDEX [Suspect]
     Active Substance: CHLORHEXIDINE GLUCONATE
     Dosage: 10ML, UNK
     Dates: start: 20170824, end: 20170824
  7. TAMOXIFEN [Concomitant]
     Active Substance: TAMOXIFEN
     Route: 065
  8. NEXAVAR [Suspect]
     Active Substance: SORAFENIB
     Dosage: 400MG, BID
     Route: 048
     Dates: start: 20170727, end: 20170811

REACTIONS (4)
  - Lip swelling [Unknown]
  - Saliva altered [Unknown]
  - Oropharyngeal pain [Unknown]
  - Death [Fatal]

NARRATIVE: CASE EVENT DATE: 20170824
